APPROVED DRUG PRODUCT: CYTARABINE
Active Ingredient: CYTARABINE
Strength: 100MG/ML
Dosage Form/Route: INJECTABLE;INJECTION
Application: A075383 | Product #001 | TE Code: AP
Applicant: HOSPIRA INC
Approved: Nov 22, 1999 | RLD: No | RS: No | Type: RX